FAERS Safety Report 18048473 (Version 1)
Quarter: 2020Q3

REPORT INFORMATION
  Report Type: Other
  Country: FR (occurrence: FR)
  Receive Date: 20200721
  Receipt Date: 20200721
  Transmission Date: 20201103
  Serious: Yes (Other)
  Sender: FDA-Public Use
  Company Number: FR-ROCHE-2645596

PATIENT

DRUGS (7)
  1. CISPLATINE [Suspect]
     Active Substance: CISPLATIN
     Indication: SQUAMOUS CELL CARCINOMA OF SKIN
     Route: 065
  2. 5?FU [Suspect]
     Active Substance: FLUOROURACIL
     Indication: SQUAMOUS CELL CARCINOMA OF SKIN
     Route: 065
  3. CAPECITABINE. [Suspect]
     Active Substance: CAPECITABINE
     Indication: SQUAMOUS CELL CARCINOMA OF SKIN
     Route: 065
  4. CETUXIMAB. [Suspect]
     Active Substance: CETUXIMAB
     Indication: SQUAMOUS CELL CARCINOMA OF SKIN
     Route: 065
  5. CARBOPLATINE [Suspect]
     Active Substance: CARBOPLATIN
     Indication: SQUAMOUS CELL CARCINOMA OF SKIN
     Route: 065
  6. PACLITAXEL. [Suspect]
     Active Substance: PACLITAXEL
     Indication: SQUAMOUS CELL CARCINOMA OF SKIN
     Route: 065
  7. GEMCITABINE. [Suspect]
     Active Substance: GEMCITABINE
     Indication: SQUAMOUS CELL CARCINOMA OF SKIN
     Route: 065

REACTIONS (6)
  - Febrile neutropenia [Unknown]
  - Lung disorder [Unknown]
  - Neutropenia [Unknown]
  - Febrile bone marrow aplasia [Unknown]
  - Diarrhoea [Unknown]
  - Thrombocytopenia [Unknown]
